FAERS Safety Report 5191754-8 (Version None)
Quarter: 2006Q4

REPORT INFORMATION
  Report Type: 
  Country: None (occurrence: None)
  Receive Date: 20061219
  Receipt Date: 20061206
  Transmission Date: 20070319
  Serious: No
  Sender: FDA-Public Use
  Company Number: B0450563A

PATIENT
  Age: 66 Year
  Sex: Male

DRUGS (3)
  1. ALKERAN [Suspect]
     Indication: MULTIPLE MYELOMA
  2. PREDNISOLONE [Suspect]
  3. PAMIDRONIC ACID (FORMULATION UNKNOWN) (PAMIDRONIC ACID) [Suspect]
     Dosage: 90 MG / INTRAVENOUS
     Route: 042

REACTIONS (3)
  - ACTINOMYCOSIS [None]
  - OSTEOMYELITIS [None]
  - OSTEONECROSIS [None]
